FAERS Safety Report 5103124-9 (Version None)
Quarter: 2006Q3

REPORT INFORMATION
  Report Type: 
  Country: None (occurrence: None)
  Receive Date: 20060908
  Receipt Date: 20060829
  Transmission Date: 20061208
  Serious: Yes (Other)
  Sender: FDA-Public Use
  Company Number: 2006105148

PATIENT
  Age: 47 Year
  Sex: Female

DRUGS (3)
  1. ATORVASTATIN CALCIUM [Suspect]
     Indication: HYPERCHOLESTEROLAEMIA
     Dosage: 10 MG, ORAL
     Route: 048
     Dates: start: 20051101
  2. THYROXIN (LEVOTHYROXINE SODIUM) [Concomitant]
  3. NEBIVOLOL HCL [Concomitant]

REACTIONS (3)
  - LEUKOCYTOSIS [None]
  - LYMPHOCYTIC LEUKAEMIA [None]
  - LYMPHOCYTOSIS [None]
